FAERS Safety Report 17249649 (Version 1)
Quarter: 2020Q1

REPORT INFORMATION
  Report Type: Spontaneous
  Country: FR (occurrence: FR)
  Receive Date: 20200108
  Receipt Date: 20200108
  Transmission Date: 20200409
  Serious: Yes (Other)
  Sender: FDA-Public Use
  Company Number: FR-TEVA-2020-FR-1164513

PATIENT
  Age: 38 Year
  Sex: Female

DRUGS (3)
  1. EXOMUC [Concomitant]
     Active Substance: ACETYLCYSTEINE
  2. DERINOX [Concomitant]
  3. AMOXICILLINE [Suspect]
     Active Substance: AMOXICILLIN
     Indication: COUGH
     Dosage: 1 DF
     Route: 048
     Dates: start: 2019

REACTIONS (1)
  - Angioedema [Recovered/Resolved]

NARRATIVE: CASE EVENT DATE: 2019
